FAERS Safety Report 5899302-1 (Version None)
Quarter: 2008Q3

REPORT INFORMATION
  Report Type: 
  Country: None (occurrence: None)
  Receive Date: 20080828
  Receipt Date: 20071022
  Transmission Date: 20090109
  Serious: Yes (Hospitalization)
  Sender: FDA-Public Use
  Company Number: CIP07000869

PATIENT
  Age: 63 Year
  Sex: Male

DRUGS (12)
  1. ASACOL [Suspect]
     Indication: COLITIS ULCERATIVE
     Dosage: 1200 MG THREE TIMES DAILY, ORAL
     Route: 048
     Dates: start: 20070301, end: 20070525
  2. ZOLOFT [Concomitant]
  3. ASPIRIN [Concomitant]
  4. BENADRYL [Concomitant]
  5. LOPRESSOR [Concomitant]
  6. PREVACID [Concomitant]
  7. REGLAN /00041901/ (METOCLOPRAMIDE) [Concomitant]
  8. PERCOCET /00446701/ (PARACETAMOL, OXYCODONE HYDROCHLORIDE, OXYCODONE T [Concomitant]
  9. COUMADIN [Concomitant]
  10. LOMOTIL /00034001/ (DIPHENOXYLATE HYDROCHLORIDE, ATROPINE SULFATE) [Concomitant]
  11. ALLEGRA /01314201/ (FEXOFENADINE) [Concomitant]
  12. ALLOPURINOL [Concomitant]

REACTIONS (5)
  - DEHYDRATION [None]
  - DRUG INEFFECTIVE [None]
  - FATIGUE [None]
  - LETHARGY [None]
  - MEDICATION RESIDUE [None]
